FAERS Safety Report 18563205 (Version 1)
Quarter: 2020Q4

REPORT INFORMATION
  Report Type: Spontaneous
  Country: DE (occurrence: DE)
  Receive Date: 20201201
  Receipt Date: 20201201
  Transmission Date: 20210114
  Serious: Yes (Other)
  Sender: FDA-Public Use
  Company Number: DE-AMGEN-DEUSP2020193909

PATIENT

DRUGS (8)
  1. CYTOSINE ARABINOSIDE [Concomitant]
     Active Substance: CYTARABINE
     Indication: LYMPHOMA
     Dosage: 2 GRAM PER SQUARE METRE (EVERY 12 HOURS ON DAY 1 AND 2), 200 MILLIGRAM/SQ. METER (DAY 4 TO 7), 800 M
  2. NEUPOGEN [Suspect]
     Active Substance: FILGRASTIM
     Indication: HAEMATOPOIETIC STEM CELL MOBILISATION
     Dosage: 300 MICROGRAM, AFTER CHEMO (PER DAY)
     Route: 058
  3. MELPHALAN. [Concomitant]
     Active Substance: MELPHALAN
     Indication: LYMPHOMA
     Dosage: 30 MILLIGRAM/SQ. METER, (DAY 3), 140 MILLIGRAM/SQ. METER
  4. MITOXANTRONE [Concomitant]
     Active Substance: MITOXANTRONE HYDROCHLORIDE
     Indication: LYMPHOMA
     Dosage: 10 MILLIGRAM/SQ. METER, (ON DAY 2 AND 3)
  5. CARMUSTINE. [Concomitant]
     Active Substance: CARMUSTINE
     Indication: LYMPHOMA
     Dosage: 60 MILLIGRAM/SQ. METER, (ON DAY 3), 300 MILLIGRAM/SQ. METER, 450 MILLIGRAM/SQ. METER
  6. DEXAMETHASONE. [Concomitant]
     Active Substance: DEXAMETHASONE
     Indication: LYMPHOMA
     Dosage: 24 MILLIGRAM, QD (ON DAY 1 TO 7)
  7. ETOPOSIDE. [Concomitant]
     Active Substance: ETOPOSIDE
     Indication: LYMPHOMA
     Dosage: 75 MILLIGRAM/SQ. METER, (ON DAYS 4 TO 7), 1200 MILLIGRAM/SQ. METER, 1600 MILLIGRAM/SQ. METER
  8. CYCLOPHOSPHAMIDE. [Concomitant]
     Active Substance: CYCLOPHOSPHAMIDE
     Indication: LYMPHOMA
     Dosage: 200 MILLIGRAM/KILOGRAM (OVER 4 DAYS), 6.8 GRAM PER SQUARE METRE

REACTIONS (4)
  - Thrombocytopenia [Unknown]
  - Toxicity to various agents [Unknown]
  - Lymphoma [Unknown]
  - Pyrexia [Unknown]
